FAERS Safety Report 11053830 (Version 3)
Quarter: 2015Q2

REPORT INFORMATION
  Report Type: Spontaneous
  Country: US (occurrence: US)
  Receive Date: 20150421
  Receipt Date: 20150625
  Transmission Date: 20150821
  Serious: Yes (Hospitalization, Other)
  Sender: FDA-Public Use
  Company Number: US-009507513-1110USA03282

PATIENT
  Sex: Female
  Weight: 74.38 kg

DRUGS (6)
  1. ACTONEL [Suspect]
     Active Substance: RISEDRONATE SODIUM
     Indication: OSTEOARTHRITIS
  2. FOSAMAX PLUS D [Suspect]
     Active Substance: ALENDRONATE SODIUM\CHOLECALCIFEROL
     Indication: BONE DENSITY DECREASED
     Dosage: 70 MG, UNK
     Route: 048
     Dates: start: 20061221, end: 20090426
  3. FOSAMAX PLUS D [Suspect]
     Active Substance: ALENDRONATE SODIUM\CHOLECALCIFEROL
     Indication: OSTEOARTHRITIS
  4. FOSAMAX PLUS D [Suspect]
     Active Substance: ALENDRONATE SODIUM\CHOLECALCIFEROL
     Indication: FIBROMYALGIA
  5. ACTONEL [Suspect]
     Active Substance: RISEDRONATE SODIUM
     Indication: BONE DENSITY DECREASED
     Dosage: 150 MG, UNK
     Route: 048
     Dates: start: 20090505, end: 20110124
  6. ACTONEL [Suspect]
     Active Substance: RISEDRONATE SODIUM
     Indication: FIBROMYALGIA

REACTIONS (27)
  - Renal surgery [Unknown]
  - Osteonecrosis [Unknown]
  - Foot fracture [Unknown]
  - Femur fracture [Recovered/Resolved]
  - Back pain [Unknown]
  - Muscle spasms [Unknown]
  - Joint injury [Unknown]
  - Bursitis [Unknown]
  - Medical device pain [Unknown]
  - Nerve injury [Unknown]
  - Spinal fusion surgery [Unknown]
  - Cardiac disorder [Unknown]
  - Malignant melanoma [Unknown]
  - Surgery [Unknown]
  - Foot fracture [Unknown]
  - Skin lesion excision [Unknown]
  - Contusion [Unknown]
  - Renal disorder [Unknown]
  - Bursitis [Unknown]
  - Foot deformity [Unknown]
  - Ligament sprain [Unknown]
  - Foot fracture [Unknown]
  - Intramedullary rod insertion [Unknown]
  - Malignant melanoma [Unknown]
  - Surgery [Unknown]
  - Depression [Unknown]
  - Hypoaesthesia [Unknown]

NARRATIVE: CASE EVENT DATE: 2006
